FAERS Safety Report 12384918 (Version 1)
Quarter: 2016Q2

REPORT INFORMATION
  Report Type: Spontaneous
  Country: US (occurrence: None)
  Receive Date: 20160518
  Receipt Date: 20160518
  Transmission Date: 20160815
  Serious: Yes (Death, Hospitalization)
  Sender: FDA-Public Use
  Company Number: None

PATIENT
  Age: 54 Year
  Sex: Female
  Weight: 74.84 kg

DRUGS (2)
  1. MULTIVITAMIN [Concomitant]
     Active Substance: VITAMINS
  2. ADRIAMYCIN [Suspect]
     Active Substance: DOXORUBICIN HYDROCHLORIDE
     Indication: BREAST CANCER METASTATIC
     Route: 040
     Dates: start: 20150709

REACTIONS (12)
  - Cardiomyopathy [None]
  - Renal impairment [None]
  - Myocarditis [None]
  - Troponin increased [None]
  - Transaminases increased [None]
  - Acute kidney injury [None]
  - Sepsis [None]
  - Thrombocytopenia [None]
  - Respiratory failure [None]
  - Cardiac failure congestive [None]
  - Hydroureter [None]
  - Lactic acidosis [None]

NARRATIVE: CASE EVENT DATE: 20150815
